FAERS Safety Report 10810904 (Version 1)
Quarter: 2015Q1

REPORT INFORMATION
  Report Type: Spontaneous
  Country: US (occurrence: None)
  Receive Date: 20150212
  Receipt Date: 20150212
  Transmission Date: 20150721
  Serious: No
  Sender: FDA-Public Use
  Company Number: None

PATIENT
  Age: 62 Year
  Sex: Male
  Weight: 136.08 kg

DRUGS (4)
  1. GEN ADDERALL [Concomitant]
  2. D-AMPHETAMINE COMBO SALTS [Suspect]
     Active Substance: AMPHETAMINE ASPARTATE\AMPHETAMINE SULFATE\DEXTROAMPHETAMINE SACCHARATE\DEXTROAMPHETAMINE SULFATE
     Indication: ATTENTION DEFICIT/HYPERACTIVITY DISORDER
     Route: 048
     Dates: start: 20150125, end: 20150209
  3. CPAP WITH OXYGEN [Concomitant]
  4. CHEWABLE VITAMIN C [Concomitant]

REACTIONS (8)
  - Product substitution issue [None]
  - Condition aggravated [None]
  - Product quality issue [None]
  - Attention deficit/hyperactivity disorder [None]
  - Underdose [None]
  - Feeding disorder [None]
  - Malaise [None]
  - Blood pressure increased [None]

NARRATIVE: CASE EVENT DATE: 20150209
